FAERS Safety Report 5085941-7 (Version None)
Quarter: 2006Q3

REPORT INFORMATION
  Report Type: 
  Country: None (occurrence: None)
  Receive Date: 20060817
  Receipt Date: 20060807
  Transmission Date: 20061208
  Serious: Yes (Disabling, Other)
  Sender: FDA-Public Use
  Company Number: 2006086297

PATIENT
  Sex: Female
  Weight: 67 kg

DRUGS (1)
  1. DEPO-MEDROL [Suspect]
     Indication: INTERVERTEBRAL DISC PROTRUSION
     Dosage: (80 MG)
     Dates: start: 19970307

REACTIONS (8)
  - DRUG ADMINISTRATION ERROR [None]
  - FATIGUE [None]
  - FORMICATION [None]
  - MUSCLE SPASMS [None]
  - NERVE INJURY [None]
  - NEURALGIA [None]
  - PAIN [None]
  - TENDONITIS [None]
